FAERS Safety Report 14163691 (Version 2)
Quarter: 2017Q4

REPORT INFORMATION
  Report Type: Spontaneous
  Country: IN (occurrence: IN)
  Receive Date: 20171107
  Receipt Date: 20171225
  Transmission Date: 20180321
  Serious: Yes (Disabling)
  Sender: FDA-Public Use
  Company Number: IN-ROCHE-2019686

PATIENT
  Age: 62 Year
  Sex: Male
  Weight: 68 kg

DRUGS (2)
  1. ACCENTRIX [Suspect]
     Active Substance: RANIBIZUMAB
     Indication: VITREOUS HAEMORRHAGE
  2. ACCENTRIX [Suspect]
     Active Substance: RANIBIZUMAB
     Indication: DIABETIC RETINOPATHY
     Dosage: 0.05 OT, UNK
     Route: 065
     Dates: start: 20171017

REACTIONS (4)
  - Eye pain [Unknown]
  - Vitritis [Unknown]
  - Endophthalmitis [Not Recovered/Not Resolved]
  - Visual impairment [Unknown]

NARRATIVE: CASE EVENT DATE: 20171020
